FAERS Safety Report 18542297 (Version 1)
Quarter: 2020Q4

REPORT INFORMATION
  Report Type: Spontaneous
  Country: DE (occurrence: DE)
  Receive Date: 20201124
  Receipt Date: 20201124
  Transmission Date: 20210114
  Serious: Yes (Other)
  Sender: FDA-Public Use
  Company Number: DE-BRISTOL-MYERS SQUIBB COMPANY-BMS-2020-098204

PATIENT
  Sex: Male
  Weight: 80 kg

DRUGS (6)
  1. OLMECOR HCT [Suspect]
     Active Substance: HYDROCHLOROTHIAZIDE\OLMESARTAN MEDOXOMIL
     Indication: HYPERTENSION
     Dosage: 20 MG/12.5 MG, PER DAY
     Route: 048
     Dates: start: 201911
  2. SIMVASTATIN AXCOUNT [Concomitant]
     Indication: PROPHYLAXIS
     Dosage: 20 MG PER DAY
     Route: 048
  3. SIMVASTATIN AXCOUNT [Concomitant]
     Dosage: 40 MG PER DAY
     Route: 048
     Dates: start: 201811
  4. BISOPROLOL SANDOZ [Concomitant]
     Active Substance: BISOPROLOL
     Indication: HYPERTENSION
     Dosage: 10 MG, PER DAY
     Route: 065
  5. ELIQUIS [Suspect]
     Active Substance: APIXABAN
     Indication: CEREBROVASCULAR ACCIDENT PROPHYLAXIS
     Dosage: 10 MG, PER DAY
     Route: 048
     Dates: start: 201811
  6. BISOPROLOL SANDOZ [Concomitant]
     Active Substance: BISOPROLOL
     Dosage: 20 MG PER DAY
     Route: 048
     Dates: start: 201811

REACTIONS (2)
  - Syncope [Recovered/Resolved]
  - Hypotension [Recovered/Resolved]

NARRATIVE: CASE EVENT DATE: 202005
